FAERS Safety Report 4657656-8 (Version None)
Quarter: 2005Q2

REPORT INFORMATION
  Report Type: 
  Country: None (occurrence: None)
  Receive Date: 20050510
  Receipt Date: 20050427
  Transmission Date: 20051028
  Serious: Yes (Hospitalization, Other)
  Sender: FDA-Public Use
  Company Number: PHFR2005GB01658

PATIENT
  Age: 63 Year
  Sex: Male

DRUGS (13)
  1. CLOFAZIMINE [Suspect]
     Indication: PYODERMA GANGRENOSUM
     Route: 065
  2. METHOTREXATE [Suspect]
     Indication: PYODERMA GANGRENOSUM
     Dosage: 7.5 MG, QW
     Route: 048
  3. CELLCEPT [Suspect]
     Indication: PYODERMA GANGRENOSUM
     Dosage: 500 MG, BID
  4. DERMOVATE [Suspect]
     Indication: PYODERMA GANGRENOSUM
     Route: 061
  5. THALIDOMIDE [Suspect]
     Indication: PYODERMA GANGRENOSUM
     Dosage: 150 MG, QD
     Route: 048
  6. TRIAMCINOLONE [Suspect]
     Indication: PYODERMA GANGRENOSUM
     Route: 065
  7. FILGRASTIM [Suspect]
     Dosage: 400 UG, QD
     Route: 058
  8. METHYLPREDNISOLONE [Suspect]
     Dosage: 40-80MG QD
     Route: 058
  9. PREDNISOLONE [Suspect]
     Indication: PYODERMA GANGRENOSUM
     Route: 065
  10. IMMUNE GLOBULIN INTRAVENOUS (HUMAN) [Suspect]
     Indication: PYODERMA GANGRENOSUM
     Route: 042
  11. NEORAL [Suspect]
     Indication: PYODERMA GANGRENOSUM
     Dosage: 5MG/KG QD
     Route: 065
  12. ANTIBIOTICS [Suspect]
     Indication: PYODERMA GANGRENOSUM
  13. INFLIXIMAB [Concomitant]

REACTIONS (7)
  - CUSHINGOID [None]
  - DIABETES MELLITUS [None]
  - DRUG INEFFECTIVE [None]
  - HAEMOGLOBIN DECREASED [None]
  - PEPTIC ULCER PERFORATION [None]
  - PERITONITIS [None]
  - WOUND DEHISCENCE [None]
